FAERS Safety Report 14111246 (Version 1)
Quarter: 2017Q4

REPORT INFORMATION
  Report Type: Spontaneous
  Country: AR (occurrence: AR)
  Receive Date: 20171020
  Receipt Date: 20171020
  Transmission Date: 20180321
  Serious: Yes (Other)
  Sender: FDA-Public Use
  Company Number: AR-PFIZER INC-2017321276

PATIENT
  Age: 73 Year
  Sex: Female

DRUGS (1)
  1. SUTENT [Suspect]
     Active Substance: SUNITINIB MALATE
     Dosage: UNK
     Dates: start: 20170701, end: 201707

REACTIONS (10)
  - Fall [Unknown]
  - Spinal fracture [Unknown]
  - Pain [Unknown]
  - Hip fracture [Unknown]
  - Temperature intolerance [Unknown]
  - Blood pressure increased [Unknown]
  - Pain in extremity [Unknown]
  - Arthralgia [Unknown]
  - Gait disturbance [Unknown]
  - Musculoskeletal pain [Unknown]

NARRATIVE: CASE EVENT DATE: 201707
